FAERS Safety Report 9898762 (Version 3)
Quarter: 2015Q3

REPORT INFORMATION
  Report Type: Spontaneous
  Country: US (occurrence: US)
  Receive Date: 20140214
  Receipt Date: 20150810
  Transmission Date: 20151125
  Serious: No
  Sender: FDA-Public Use
  Company Number: US-GILEAD-2011-0045195

PATIENT
  Age: 57 Year
  Sex: Female

DRUGS (2)
  1. LETAIRIS [Suspect]
     Active Substance: AMBRISENTAN
     Indication: PRODUCT USED FOR UNKNOWN INDICATION
     Dosage: 5 MG, UNK
     Route: 048
     Dates: start: 20110602
  2. REMODULIN [Concomitant]
     Active Substance: TREPROSTINIL

REACTIONS (8)
  - Frequent bowel movements [Unknown]
  - Headache [Unknown]
  - Myalgia [Unknown]
  - Vomiting [Unknown]
  - Pain [Unknown]
  - Faeces discoloured [Unknown]
  - Catheter site pain [Unknown]
  - Diarrhoea [Unknown]
